FAERS Safety Report 5350656-4 (Version None)
Quarter: 2007Q2

REPORT INFORMATION
  Report Type: 
  Country: None (occurrence: None)
  Receive Date: 20070608
  Receipt Date: 20070605
  Transmission Date: 20071010
  Serious: Yes (Hospitalization)
  Sender: FDA-Public Use
  Company Number: JP-SP-2007-02069

PATIENT
  Age: 68 Year
  Sex: Male

DRUGS (2)
  1. IMMUCYST [Suspect]
     Indication: BLADDER CANCER
     Route: 043
     Dates: start: 20070329, end: 20070426
  2. IMMUCYST [Suspect]
     Route: 043
     Dates: start: 20070329, end: 20070426

REACTIONS (3)
  - BLADDER PAIN [None]
  - POLLAKIURIA [None]
  - PYREXIA [None]
